FAERS Safety Report 6303569-5 (Version None)
Quarter: 2009Q3

REPORT INFORMATION
  Report Type: 
  Country: None (occurrence: None)
  Receive Date: 20090807
  Receipt Date: 20090807
  Transmission Date: 20100115
  Serious: No
  Sender: FDA-Public Use
  Company Number: None

PATIENT
  Age: 18 Year
  Sex: Female
  Weight: 52.1637 kg

DRUGS (1)
  1. KENALOG [Suspect]

REACTIONS (3)
  - INJECTION SITE REACTION [None]
  - INJECTION SITE SCAR [None]
  - SCAR PAIN [None]
